FAERS Safety Report 6749469-8 (Version None)
Quarter: 2010Q2

REPORT INFORMATION
  Report Type: 
  Country: None (occurrence: None)
  Receive Date: 20100527
  Receipt Date: 20100527
  Transmission Date: 20101027
  Serious: Yes (Life-Threatening, Hospitalization)
  Sender: FDA-Public Use
  Company Number: None

PATIENT
  Age: 68 Year
  Sex: Female
  Weight: 68.0396 kg

DRUGS (1)
  1. MACROBID [Suspect]
     Indication: CYSTITIS

REACTIONS (7)
  - ABDOMINAL DISCOMFORT [None]
  - ASTHENIA [None]
  - CYSTITIS [None]
  - DISEASE RECURRENCE [None]
  - MALAISE [None]
  - PNEUMONIA [None]
  - VOMITING [None]
